FAERS Safety Report 5953370-7 (Version None)
Quarter: 2008Q4

REPORT INFORMATION
  Report Type: 
  Country: None (occurrence: None)
  Receive Date: 20081114
  Receipt Date: 20081111
  Transmission Date: 20090506
  Serious: Yes (Death)
  Sender: FDA-Public Use
  Company Number: US-GILEAD-2008-0018481

PATIENT
  Sex: Male
  Weight: 96.248 kg

DRUGS (16)
  1. LETAIRIS [Suspect]
     Indication: PULMONARY ARTERIAL HYPERTENSION
     Route: 048
     Dates: start: 20070711, end: 20080226
  2. REVATIO [Concomitant]
     Route: 048
  3. LOVASTATIN [Concomitant]
     Route: 048
  4. METOPROLOL TARTRATE [Concomitant]
     Route: 048
  5. MEVACOR [Concomitant]
     Route: 048
  6. ZETIA [Concomitant]
     Route: 048
  7. ASPIRIN [Concomitant]
     Route: 048
  8. AVAPRO [Concomitant]
     Route: 048
  9. LASIX [Concomitant]
     Route: 048
  10. HUMALOG [Concomitant]
     Route: 058
  11. LANTUS [Concomitant]
     Route: 048
  12. METFORMIN HCL [Concomitant]
     Route: 048
  13. MULTI-VITAMIN [Concomitant]
     Route: 048
  14. CENTRUM SILVER [Concomitant]
     Route: 048
  15. VITAMIN E [Concomitant]
     Route: 048
  16. VITAMIN B COMPLEX CAP [Concomitant]
     Route: 048

REACTIONS (1)
  - DEATH [None]
